FAERS Safety Report 6461880-1 (Version None)
Quarter: 2009Q4

REPORT INFORMATION
  Report Type: 
  Country: None (occurrence: None)
  Receive Date: 20091130
  Receipt Date: 20091119
  Transmission Date: 20100525
  Serious: Yes (Other)
  Sender: FDA-Public Use
  Company Number: PHHY2009HU51039

PATIENT
  Age: 42 Year
  Sex: Male

DRUGS (1)
  1. CYCLOSPORINE [Suspect]
     Indication: PSORIASIS
     Dosage: UNK
     Dates: start: 20090501

REACTIONS (2)
  - CARDIAC FAILURE [None]
  - HEPATIC ENZYME INCREASED [None]
